FAERS Safety Report 7786713-2 (Version None)
Quarter: 2011Q3

REPORT INFORMATION
  Report Type: 
  Country: None (occurrence: None)
  Receive Date: 20110929
  Receipt Date: 20110907
  Transmission Date: 20111222
  Serious: Yes (Other)
  Sender: FDA-Public Use
  Company Number: US-SANOFI-AVENTIS-2011SA047304

PATIENT
  Sex: Male

DRUGS (5)
  1. SOLOSTAR [Suspect]
     Dates: start: 20110101, end: 20110101
  2. METFORMIN HCL [Concomitant]
     Route: 065
     Dates: start: 20110101
  3. LANTUS [Suspect]
     Dosage: DOSE:16 UNIT(S)
     Route: 051
     Dates: start: 20110101, end: 20110101
  4. LANTUS [Suspect]
     Dosage: DOSE:10 UNIT(S)
     Route: 051
     Dates: start: 20110101, end: 20110101
  5. SOLOSTAR [Suspect]
     Dates: start: 20110101, end: 20110101

REACTIONS (1)
  - DEVICE MALFUNCTION [None]
